FAERS Safety Report 8177624-1 (Version None)
Quarter: 2012Q1

REPORT INFORMATION
  Report Type: 
  Country: None (occurrence: None)
  Receive Date: 20120301
  Receipt Date: 20120217
  Transmission Date: 20120608
  Serious: Yes (Other)
  Sender: FDA-Public Use
  Company Number: PHFR2012GB000671

PATIENT
  Sex: Male

DRUGS (6)
  1. LANSOPRAZOLE [Concomitant]
     Indication: GASTRITIS
     Dosage: 30 MG, UNK
  2. ZOPICLON [Concomitant]
     Indication: INSOMNIA
     Dosage: 7.5 MG, DAILY
  3. CLOZARIL [Suspect]
     Indication: SCHIZOPHRENIA
     Dosage: 500 MG, DAILY
     Route: 048
     Dates: start: 20010515
  4. VITAMIN A [Concomitant]
     Dosage: UNK UKN, UNK
  5. CLOZARIL [Suspect]
     Dosage: 400 MG, DAILY
     Dates: start: 20120125
  6. THIAMINE HCL [Concomitant]
     Dosage: 100 MG, DAILY
     Route: 048

REACTIONS (9)
  - MALAISE [None]
  - EOSINOPHIL COUNT INCREASED [None]
  - THROMBOCYTOPENIA [None]
  - FALL [None]
  - CONFUSIONAL STATE [None]
  - NEUTROPHIL COUNT DECREASED [None]
  - PLATELET COUNT DECREASED [None]
  - ALCOHOLISM [None]
  - HEPATITIS C [None]
